FAERS Safety Report 5224422-4 (Version None)
Quarter: 2007Q1

REPORT INFORMATION
  Report Type: 
  Country: None (occurrence: None)
  Receive Date: 20070130
  Receipt Date: 20070123
  Transmission Date: 20070707
  Serious: Yes (Other)
  Sender: FDA-Public Use
  Company Number: AU-PFIZER INC-2006144724

PATIENT
  Sex: Male
  Weight: 88 kg

DRUGS (3)
  1. LIPITOR [Suspect]
     Route: 048
  2. RENITEC [Concomitant]
  3. RENITEC PLUS [Concomitant]

REACTIONS (8)
  - ARTHRALGIA [None]
  - HYPOAESTHESIA [None]
  - HYPOKINESIA [None]
  - MUSCLE FATIGUE [None]
  - NEUROLOGICAL SYMPTOM [None]
  - PARALYSIS [None]
  - SURGERY [None]
  - TREMOR [None]
